FAERS Safety Report 17371774 (Version 2)
Quarter: 2020Q1

REPORT INFORMATION
  Report Type: Spontaneous
  Country: US (occurrence: US)
  Receive Date: 20200205
  Receipt Date: 20200210
  Transmission Date: 20200409
  Serious: No
  Sender: FDA-Public Use
  Company Number: US-JNJFOC-20200148518

PATIENT
  Age: 62 Year
  Sex: Male

DRUGS (1)
  1. TREMFYA [Suspect]
     Active Substance: GUSELKUMAB
     Indication: PRODUCT USED FOR UNKNOWN INDICATION
     Route: 058
     Dates: start: 20190109

REACTIONS (2)
  - Off label use [Unknown]
  - Product use issue [Unknown]

NARRATIVE: CASE EVENT DATE: 20191008
